FAERS Safety Report 17495153 (Version 1)
Quarter: 2020Q1

REPORT INFORMATION
  Report Type: Spontaneous
  Country: PT (occurrence: PT)
  Receive Date: 20200303
  Receipt Date: 20200303
  Transmission Date: 20200409
  Serious: Yes (Other)
  Sender: FDA-Public Use
  Company Number: PT-AKCEA THERAPEUTICS-2019IS001778

PATIENT

DRUGS (2)
  1. GABAPENTIN. [Concomitant]
     Active Substance: GABAPENTIN
     Indication: PRODUCT USED FOR UNKNOWN INDICATION
     Dosage: UNK
     Route: 065
  2. TEGSEDI [Suspect]
     Active Substance: INOTERSEN SODIUM
     Indication: POLYNEUROPATHY
     Dosage: 300 MG, UNK
     Route: 058
     Dates: start: 20191012, end: 20191123

REACTIONS (14)
  - Lupus-like syndrome [Recovered/Resolved]
  - Arthralgia [Recovered/Resolved]
  - Aspartate aminotransferase increased [Unknown]
  - High density lipoprotein increased [Unknown]
  - Erythema [Not Recovered/Not Resolved]
  - Peripheral swelling [Not Recovered/Not Resolved]
  - Protein total increased [Unknown]
  - Thyroxine free decreased [Unknown]
  - Blood immunoglobulin A decreased [Unknown]
  - Complement factor C3 decreased [Unknown]
  - Pain in extremity [Not Recovered/Not Resolved]
  - Blood creatine phosphokinase increased [Unknown]
  - Antinuclear antibody increased [Unknown]
  - Blood immunoglobulin M increased [Unknown]

NARRATIVE: CASE EVENT DATE: 20191021
